FAERS Safety Report 21819884 (Version 1)
Quarter: 2023Q1

REPORT INFORMATION
  Report Type: Spontaneous
  Country: US (occurrence: US)
  Receive Date: 20230104
  Receipt Date: 20230104
  Transmission Date: 20230417
  Serious: No
  Sender: FDA-Public Use
  Company Number: US-BRISTOL-MYERS SQUIBB COMPANY-2023-001540

PATIENT
  Age: 73 Year
  Sex: Female

DRUGS (2)
  1. REVLIMID [Suspect]
     Active Substance: LENALIDOMIDE
     Indication: Plasma cell myeloma
  2. REVLIMID [Suspect]
     Active Substance: LENALIDOMIDE
     Dosage: DOSE 25 MG, FREQUENCY: 1 CAPSULE DAILY FOR 14 DAYS AND 7 DAYS OFF
     Route: 048
     Dates: start: 202212

REACTIONS (2)
  - COVID-19 [Unknown]
  - Off label use [Unknown]
